FAERS Safety Report 14229724 (Version 1)
Quarter: 2017Q4

REPORT INFORMATION
  Report Type: Spontaneous
  Country: US (occurrence: None)
  Receive Date: 20171127
  Receipt Date: 20171127
  Transmission Date: 20180321
  Serious: No
  Sender: FDA-Public Use
  Company Number: None

PATIENT
  Sex: Female

DRUGS (2)
  1. ENBREL [Suspect]
     Active Substance: ETANERCEPT
     Indication: PSORIATIC ARTHROPATHY
     Route: 058
     Dates: start: 201710, end: 201711
  2. RASUVO [Suspect]
     Active Substance: METHOTREXATE SODIUM

REACTIONS (4)
  - Pain [None]
  - Discomfort [None]
  - Insomnia [None]
  - Drug ineffective [None]
